FAERS Safety Report 4453420-3 (Version None)
Quarter: 2004Q3

REPORT INFORMATION
  Report Type: 
  Country: None (occurrence: None)
  Receive Date: 20040920
  Receipt Date: 20040902
  Transmission Date: 20050211
  Serious: Yes (Other)
  Sender: FDA-Public Use
  Company Number: BE-JNJFOC-20040901475

PATIENT
  Sex: Male

DRUGS (2)
  1. PROPULSID [Suspect]
     Indication: OESOPHAGITIS
     Route: 049
     Dates: start: 20040706, end: 20040811
  2. PROPULSID [Suspect]
     Route: 049
     Dates: start: 20040706, end: 20040811

REACTIONS (1)
  - SURGERY [None]
